FAERS Safety Report 24340183 (Version 1)
Quarter: 2024Q3

REPORT INFORMATION
  Report Type: Spontaneous
  Country: CN (occurrence: CN)
  Receive Date: 20240919
  Receipt Date: 20240919
  Transmission Date: 20241016
  Serious: Yes (Hospitalization)
  Sender: EISAI
  Company Number: CN-Eisai-EC-2024-174415

PATIENT
  Age: 80 Year
  Sex: Female
  Weight: 60 kg

DRUGS (3)
  1. LECANEMAB [Suspect]
     Active Substance: LECANEMAB
     Indication: Dementia Alzheimer^s type
     Dosage: 1ST INFUSION
     Route: 042
  2. LECANEMAB [Suspect]
     Active Substance: LECANEMAB
     Dosage: DOSE UNKNOWN
     Route: 042
  3. LECANEMAB [Suspect]
     Active Substance: LECANEMAB
     Dosage: 12TH INFUSION
     Route: 042
     Dates: start: 20240911, end: 20240911

REACTIONS (5)
  - Atrial fibrillation [Recovering/Resolving]
  - Cardiac failure [Recovering/Resolving]
  - Dizziness [Recovered/Resolved]
  - Palpitations [Recovered/Resolved]
  - Discomfort [Recovered/Resolved]

NARRATIVE: CASE EVENT DATE: 20240911
